FAERS Safety Report 8774690 (Version 1)
Quarter: 2012Q4

REPORT INFORMATION
  Report Type: 
  Country: ES (occurrence: ES)
  Receive Date: 20120910
  Receipt Date: 20120910
  Transmission Date: 20130627
  Serious: Yes (Other)
  Sender: FDA-Public Use
  Company Number: ES-PAR PHARMACEUTICAL, INC-2012SCPR004610

PATIENT

DRUGS (3)
  1. DISULFIRAM [Suspect]
     Indication: ALCOHOLISM
     Dosage: 250 mg, / day
     Route: 065
  2. METHYLPHENIDATE [Interacting]
     Indication: PRODUCT USED FOR UNKNOWN INDICATION
     Dosage: 36 mg, / day
     Route: 065
  3. METHYLPHENIDATE [Interacting]
     Dosage: 54 mg, / day
     Route: 065

REACTIONS (2)
  - Drug interaction [Unknown]
  - Psychotic disorder [Recovered/Resolved]
